FAERS Safety Report 5930204-8 (Version None)
Quarter: 2008Q4

REPORT INFORMATION
  Report Type: 
  Country: None (occurrence: None)
  Receive Date: 20081024
  Receipt Date: 20081015
  Transmission Date: 20090506
  Serious: Yes (Other)
  Sender: FDA-Public Use
  Company Number: US-PFIZER INC-2008087258

PATIENT
  Sex: Female

DRUGS (10)
  1. ZOLOFT [Suspect]
     Indication: DEPRESSION
  2. RASAGILINE MESILATE [Interacting]
     Indication: PARKINSON'S DISEASE
     Dates: start: 20071201
  3. ATENOLOL [Concomitant]
  4. IBANDRONATE SODIUM [Concomitant]
  5. SALBUTAMOL [Concomitant]
  6. EXELON [Concomitant]
  7. ASPIRIN [Concomitant]
  8. STALEVO 100 [Concomitant]
  9. PRILOSEC [Concomitant]
  10. LYRICA [Concomitant]

REACTIONS (3)
  - DRUG INTERACTION [None]
  - HYPERTENSION [None]
  - PARKINSON'S DISEASE [None]
